FAERS Safety Report 9050431 (Version 10)
Quarter: 2015Q1

REPORT INFORMATION
  Report Type: Spontaneous
  Country: US (occurrence: US)
  Receive Date: 20130205
  Receipt Date: 20150217
  Transmission Date: 20150721
  Serious: Yes (Other)
  Sender: FDA-Public Use
  Company Number: US-PFIZER INC-2013040523

PATIENT
  Age: 51 Year
  Sex: Female

DRUGS (39)
  1. PRISTIQ EXTENDED RELEASE [Suspect]
     Active Substance: DESVENLAFAXINE SUCCINATE
     Indication: DEPRESSION
     Dosage: 100 MG, 1X/DAY
     Route: 048
     Dates: start: 20130129
  2. LYRICA [Suspect]
     Active Substance: PREGABALIN
     Indication: SPINAL OSTEOARTHRITIS
  3. CELEBREX [Suspect]
     Active Substance: CELECOXIB
     Indication: CARPAL TUNNEL SYNDROME
  4. OXYGEN. [Concomitant]
     Active Substance: OXYGEN
     Indication: POLYNEUROPATHY CHRONIC
     Dosage: 2 LITERS DAILY AT NIGHT
  5. CELEBREX [Suspect]
     Active Substance: CELECOXIB
     Indication: SCOLIOSIS
  6. CELEBREX [Suspect]
     Active Substance: CELECOXIB
     Indication: NEUROPATHY PERIPHERAL
  7. PROPRANOLOL [Concomitant]
     Active Substance: PROPRANOLOL\PROPRANOLOL HYDROCHLORIDE
     Indication: BLOOD PRESSURE ABNORMAL
     Dosage: 10 MG, 2X/DAY
  8. CLONAZEPAM. [Concomitant]
     Active Substance: CLONAZEPAM
     Indication: MOVEMENT DISORDER
     Dosage: UNK, DAILY
  9. LYRICA [Suspect]
     Active Substance: PREGABALIN
     Indication: BRAIN NEOPLASM BENIGN
     Dosage: 150 MG, 2X/DAY
     Route: 048
     Dates: start: 20130129
  10. LYRICA [Suspect]
     Active Substance: PREGABALIN
     Indication: CARPAL TUNNEL SYNDROME
  11. CELEBREX [Suspect]
     Active Substance: CELECOXIB
     Indication: BRAIN NEOPLASM BENIGN
     Dosage: 200 MG, 2X/DAY
     Route: 048
     Dates: start: 20130129
  12. ZANAFLEX [Concomitant]
     Active Substance: TIZANIDINE HYDROCHLORIDE
     Dosage: 8MG OR 12MG, AS NEEDED
  13. TRAZODONE [Concomitant]
     Active Substance: TRAZODONE HYDROCHLORIDE
     Indication: SLEEP DISORDER
     Dosage: 100 MG, DAILY
  14. TRAMADOL [Concomitant]
     Active Substance: TRAMADOL
     Indication: RESTLESS LEGS SYNDROME
     Dosage: 0.5 MG, 3X/DAY
  15. PRAMIPEXOLE [Concomitant]
     Active Substance: PRAMIPEXOLE
     Dosage: UNK
  16. LOSARTAN [Concomitant]
     Active Substance: LOSARTAN
     Dosage: UNK
  17. LYRICA [Suspect]
     Active Substance: PREGABALIN
     Indication: SCOLIOSIS
  18. DIAZEPAM. [Concomitant]
     Active Substance: DIAZEPAM
     Dosage: UNK
  19. CALCIUM [Concomitant]
     Active Substance: CALCIUM
     Indication: BLOOD CALCIUM DECREASED
     Dosage: 2000 MG, DAILY
  20. ABILIFY [Suspect]
     Active Substance: ARIPIPRAZOLE
     Indication: DEPRESSION
     Dosage: UNK
  21. SYNTHROID [Concomitant]
     Active Substance: LEVOTHYROXINE SODIUM
     Indication: THYROID DISORDER
     Dosage: UNK, DAILY
  22. DESIPRAMINE [Concomitant]
     Active Substance: DESIPRAMINE
     Indication: SLEEP DISORDER
     Dosage: 50 MG, DAILY
  23. GLUCOSAMINE HCL [Concomitant]
     Active Substance: GLUCOSAMINE
     Dosage: UNK
  24. VITAMIN K [Concomitant]
     Active Substance: PHYTONADIONE
     Dosage: UNK
  25. MIRAPEX [Concomitant]
     Active Substance: PRAMIPEXOLE DIHYDROCHLORIDE
     Dosage: UNK
  26. LYRICA [Suspect]
     Active Substance: PREGABALIN
     Indication: NEUROPATHY PERIPHERAL
  27. OXYCODONE [Concomitant]
     Active Substance: OXYCODONE
     Indication: PAIN
     Dosage: 15 MG, EVERY 6 HRS
  28. ALBUTEROL. [Concomitant]
     Active Substance: ALBUTEROL
     Dosage: UNK
  29. VITAMIN D [Concomitant]
     Active Substance: CHOLECALCIFEROL
     Dosage: UNK
  30. FRUSEMIDE [Concomitant]
     Active Substance: FUROSEMIDE
     Dosage: UNK
  31. PROVIGIL [Concomitant]
     Active Substance: MODAFINIL
     Indication: DEPRESSED LEVEL OF CONSCIOUSNESS
     Dosage: 200 MG, 2X/DAY
  32. KLOR-CON [Concomitant]
     Active Substance: POTASSIUM CHLORIDE
     Indication: ELECTROLYTE IMBALANCE
     Dosage: 10 MG, DAILY
  33. LEVOTHYROXINE [Concomitant]
     Active Substance: LEVOTHYROXINE
     Dosage: UNK
  34. PRISTIQ EXTENDED RELEASE [Suspect]
     Active Substance: DESVENLAFAXINE SUCCINATE
     Indication: NEUROPATHY PERIPHERAL
  35. LYRICA [Suspect]
     Active Substance: PREGABALIN
     Indication: OSTEOARTHRITIS
  36. CELEBREX [Suspect]
     Active Substance: CELECOXIB
     Indication: SPINAL OSTEOARTHRITIS
  37. CELEBREX [Suspect]
     Active Substance: CELECOXIB
     Indication: OSTEOARTHRITIS
  38. BIOTIN [Concomitant]
     Active Substance: BIOTIN
     Dosage: UNK
  39. INDERAL [Concomitant]
     Active Substance: PROPRANOLOL HYDROCHLORIDE
     Dosage: UNK

REACTIONS (20)
  - Staphylococcal infection [Unknown]
  - Pain in extremity [Not Recovered/Not Resolved]
  - Brain neoplasm [Unknown]
  - Intentional self-injury [Not Recovered/Not Resolved]
  - Foot fracture [Unknown]
  - Lymphoedema [Unknown]
  - Muscle spasms [Not Recovered/Not Resolved]
  - Crying [Unknown]
  - Tardive dyskinesia [Not Recovered/Not Resolved]
  - Ulna fracture [Unknown]
  - Exostosis [Unknown]
  - Arthritis [Unknown]
  - Neoplasm malignant [Unknown]
  - Injection site pain [Unknown]
  - Foot deformity [Unknown]
  - Suicidal ideation [Unknown]
  - Cerebrovascular accident [Unknown]
  - Thyroid cancer [Unknown]
  - Dystonia [Unknown]
  - Depression [Unknown]

NARRATIVE: CASE EVENT DATE: 2013
